FAERS Safety Report 19097209 (Version 1)
Quarter: 2021Q2

REPORT INFORMATION
  Report Type: Report from Study
  Country: IN (occurrence: IN)
  Receive Date: 20210406
  Receipt Date: 20210406
  Transmission Date: 20210717
  Serious: Yes (Death, Hospitalization)
  Sender: FDA-Public Use
  Company Number: IN-ASTRAZENECA-2021A258960

PATIENT
  Age: 66 Year
  Sex: Male

DRUGS (8)
  1. NIKORAN [Concomitant]
     Indication: CARDIAC DISORDER
     Route: 048
     Dates: end: 20201024
  2. CREMAFFIN [Concomitant]
     Indication: HYPERCHLORHYDRIA
     Dosage: AS REQUIRED
     Route: 048
     Dates: end: 20201024
  3. IVABRAD [Concomitant]
     Indication: CARDIAC DISORDER
     Route: 048
     Dates: end: 20201024
  4. ASPIRIN. [Concomitant]
     Active Substance: ASPIRIN
  5. BRILINTA [Suspect]
     Active Substance: TICAGRELOR
     Indication: CARDIAC DISORDER
     Dosage: UNKNOWN, EVERY 12 HOURS
     Route: 048
  6. TONACT [Concomitant]
     Active Substance: ATORVASTATIN CALCIUM
     Indication: CARDIAC DISORDER
     Route: 048
     Dates: end: 20201024
  7. DYTOR PLUS [Concomitant]
     Indication: BLOOD PRESSURE MEASUREMENT
     Route: 048
     Dates: end: 20201024
  8. METPURE XL [Concomitant]
     Indication: BLOOD PRESSURE MEASUREMENT
     Route: 048
     Dates: end: 20201024

REACTIONS (5)
  - Death [Fatal]
  - Cough [Unknown]
  - Dyspnoea [Not Recovered/Not Resolved]
  - Heart rate increased [Unknown]
  - Insomnia [Unknown]
